FAERS Safety Report 7237824-1 (Version None)
Quarter: 2011Q1

REPORT INFORMATION
  Report Type: 
  Country: None (occurrence: None)
  Receive Date: 20110121
  Receipt Date: 20110110
  Transmission Date: 20110831
  Serious: Yes (Hospitalization, Other)
  Sender: FDA-Public Use
  Company Number: US-ELI_LILLY_AND_COMPANY-US201011003388

PATIENT
  Sex: Female
  Weight: 60.771 kg

DRUGS (15)
  1. MAALOX [Concomitant]
     Dosage: UNK, DAILY (1/D)
  2. MYSOLINE [Concomitant]
     Indication: TREMOR
     Dosage: 50 MG, EACH EVENING
  3. LIPITOR [Concomitant]
     Dosage: 80 MG, DAILY (1/D)
  4. PERCOCET [Concomitant]
     Dosage: 10 MG, EVERY 4 HRS
  5. FORTEO [Suspect]
     Indication: OSTEOPOROSIS
     Dosage: 20 UG, DAILY (1/D)
  6. PROZAC [Concomitant]
     Dosage: 40 MG, DAILY (1/D)
  7. PRILOSEC [Concomitant]
     Dosage: 20 MG, DAILY (1/D)
  8. FLEXERIL [Concomitant]
     Dosage: 1 MG, 3/D
  9. LASIX [Concomitant]
     Indication: OEDEMA
     Dosage: 20 MG, UNK
  10. ZESTRIL [Concomitant]
     Dosage: 10 MG, DAILY (1/D)
  11. METHADONE [Concomitant]
     Dosage: 10 MG, 4/D
  12. PROZAC [Concomitant]
     Dosage: 20 MG, DAILY (1/D)
  13. XANAX [Concomitant]
     Dosage: 0.5 MG, 2/D
  14. XANAX [Concomitant]
     Dosage: 0.5 MG, 2/D
  15. AMBIEN [Concomitant]
     Dosage: 10 MG, EACH EVENING

REACTIONS (5)
  - SCOLIOSIS [None]
  - MACULAR DEGENERATION [None]
  - OSTEOARTHRITIS [None]
  - INFECTION [None]
  - DEVICE DISLOCATION [None]
